FAERS Safety Report 25354770 (Version 1)
Quarter: 2025Q2

REPORT INFORMATION
  Report Type: Report from Study
  Country: US (occurrence: US)
  Receive Date: 20250524
  Receipt Date: 20250524
  Transmission Date: 20250717
  Serious: Yes (Other)
  Sender: ABBVIE
  Company Number: US-ABBVIE-6286991

PATIENT
  Age: 56 Year
  Sex: Female

DRUGS (2)
  1. ASACOL [Suspect]
     Active Substance: MESALAMINE
     Indication: Product used for unknown indication
     Route: 048
  2. LIBTAYO [Concomitant]
     Active Substance: CEMIPLIMAB-RWLC
     Indication: Product used for unknown indication

REACTIONS (10)
  - Surgery [Unknown]
  - Colitis microscopic [Unknown]
  - Unevaluable event [Unknown]
  - Bone cyst [Unknown]
  - Illness [Unknown]
  - Basal cell carcinoma [Unknown]
  - Demyelination [Unknown]
  - Pancreatic disorder [Unknown]
  - Gastrointestinal injury [Unknown]
  - Micrographic skin surgery [Unknown]

NARRATIVE: CASE EVENT DATE: 20230101
